FAERS Safety Report 5873382-1 (Version None)
Quarter: 2008Q3

REPORT INFORMATION
  Report Type: 
  Country: None (occurrence: None)
  Receive Date: 20080908
  Receipt Date: 20080903
  Transmission Date: 20090109
  Serious: Yes (Other)
  Sender: FDA-Public Use
  Company Number: US-JNJFOC-20080806571

PATIENT

DRUGS (1)
  1. REMICADE [Suspect]
     Indication: SWEAT GLAND INFECTION
     Route: 042

REACTIONS (2)
  - LUPUS-LIKE SYNDROME [None]
  - SQUAMOUS CELL CARCINOMA [None]
